FAERS Safety Report 14339877 (Version 1)
Quarter: 2017Q4

REPORT INFORMATION
  Report Type: Spontaneous
  Country: GB (occurrence: GB)
  Receive Date: 20171230
  Receipt Date: 20171230
  Transmission Date: 20180321
  Serious: Yes (Hospitalization, Other)
  Sender: FDA-Public Use
  Company Number: GB-MYLANLABS-2017M1083283

PATIENT
  Age: 44 Year
  Sex: Male

DRUGS (12)
  1. ZOMORPH [Concomitant]
     Active Substance: MORPHINE SULFATE
     Dosage: STOPPED PRIOR TO ADMISSION
     Route: 048
  2. DOCUSATE [Concomitant]
     Active Substance: DOCUSATE
  3. PREDNISOLONE. [Concomitant]
     Active Substance: PREDNISOLONE
  4. CYCLIZINE [Concomitant]
     Active Substance: CYCLIZINE
     Dosage: UP TO 3 TIMES A DAY
  5. MYCOPHENOLATE MOFETIL. [Concomitant]
     Active Substance: MYCOPHENOLATE MOFETIL
     Dates: start: 20170713
  6. LANSOPRAZOLE. [Suspect]
     Active Substance: LANSOPRAZOLE
     Indication: PRODUCT USED FOR UNKNOWN INDICATION
  7. DALTEPARIN SODIUM [Concomitant]
     Active Substance: DALTEPARIN SODIUM
     Dosage: 15,000UNITS/0.6ML
  8. MST CONTINUS [Concomitant]
     Active Substance: MORPHINE SULFATE
     Route: 048
  9. SPIRONOLACTONE. [Concomitant]
     Active Substance: SPIRONOLACTONE
     Dosage: MORNING AND LUNCH
  10. MORPHINE SULFATE. [Concomitant]
     Active Substance: MORPHINE SULFATE
     Route: 048
  11. PREGABALIN. [Concomitant]
     Active Substance: PREGABALIN
  12. FRAGMIN [Concomitant]
     Active Substance: DALTEPARIN SODIUM
     Indication: PORTAL VEIN THROMBOSIS
     Dosage: STOPPED THREE DAYS PREVIOUSLY
     Dates: start: 20170706

REACTIONS (2)
  - Hyponatraemia [Recovered/Resolved]
  - Hyperkalaemia [Unknown]
